FAERS Safety Report 4866843-5 (Version None)
Quarter: 2005Q4

REPORT INFORMATION
  Report Type: 
  Country: None (occurrence: None)
  Receive Date: 20051222
  Receipt Date: 20051206
  Transmission Date: 20060501
  Serious: Yes (Death)
  Sender: FDA-Public Use
  Company Number: 217082

PATIENT
  Age: 68 Year
  Sex: Male

DRUGS (3)
  1. AVASTIN [Suspect]
     Indication: LUNG NEOPLASM MALIGNANT
     Dates: start: 20050701, end: 20050701
  2. PACLITAXEL [Concomitant]
  3. CARBOPLATIN [Concomitant]

REACTIONS (3)
  - CARDIAC FAILURE [None]
  - PULMONARY HYPERTENSION [None]
  - RIGHT VENTRICULAR FAILURE [None]
